FAERS Safety Report 24808523 (Version 1)
Quarter: 2025Q1

REPORT INFORMATION
  Report Type: Report from Study
  Country: US (occurrence: US)
  Receive Date: 20250106
  Receipt Date: 20250106
  Transmission Date: 20250409
  Serious: Yes (Hospitalization)
  Sender: ABBVIE
  Company Number: US-ABBVIE-6070284

PATIENT
  Sex: Male

DRUGS (2)
  1. DUOPA [Suspect]
     Active Substance: CARBIDOPA\LEVODOPA
     Indication: Product used for unknown indication
     Route: 050
  2. DUOPA [Suspect]
     Active Substance: CARBIDOPA\LEVODOPA

REACTIONS (7)
  - Pneumonia aspiration [Unknown]
  - On and off phenomenon [Unknown]
  - Constipation [Unknown]
  - Spinal compression fracture [Unknown]
  - Hand fracture [Unknown]
  - Fall [Unknown]
  - Therapeutic product effect decreased [Unknown]
